FAERS Safety Report 23796070 (Version 1)
Quarter: 2024Q2

REPORT INFORMATION
  Report Type: Spontaneous
  Country: FR (occurrence: FR)
  Receive Date: 20240429
  Receipt Date: 20240429
  Transmission Date: 20240715
  Serious: Yes (Hospitalization)
  Sender: FDA-Public Use
  Company Number: None

PATIENT
  Age: 71 Year
  Sex: Female

DRUGS (4)
  1. RINVOQ [Suspect]
     Active Substance: UPADACITINIB
     Indication: Rheumatoid arthritis
     Dosage: EXTENDED RELEASE TABLET
     Route: 048
     Dates: start: 202112, end: 202305
  2. RINVOQ [Suspect]
     Active Substance: UPADACITINIB
     Indication: Rheumatoid arthritis
     Dosage: EXTENDED RELEASE TABLET
     Route: 048
     Dates: start: 202305, end: 202308
  3. XELJANZ [Suspect]
     Active Substance: TOFACITINIB CITRATE
     Indication: Rheumatoid arthritis
     Dosage: 5 MG ,COATED TABLET
     Route: 048
     Dates: start: 201801, end: 202112
  4. FILGOTINIB [Suspect]
     Active Substance: FILGOTINIB
     Indication: Rheumatoid arthritis
     Dosage: 100 MG, COATED TABLET
     Route: 048
     Dates: start: 202308, end: 20240106

REACTIONS (1)
  - Breast cancer female [Recovering/Resolving]

NARRATIVE: CASE EVENT DATE: 20240106
